FAERS Safety Report 9648468 (Version 2)
Quarter: 2013Q4

REPORT INFORMATION
  Report Type: Spontaneous
  Country: IT (occurrence: IT)
  Receive Date: 20131028
  Receipt Date: 20131217
  Transmission Date: 20140711
  Serious: Yes (Hospitalization)
  Sender: FDA-Public Use
  Company Number: IT-SA-2013SA105256

PATIENT
  Age: 79 Year
  Sex: Female

DRUGS (9)
  1. LASIX [Suspect]
     Indication: HYPERTENSION
     Dosage: DOSE: 1 POSOLOGIC UNIT
     Route: 048
     Dates: start: 20110319, end: 20131009
  2. PANTOPRAZOLE [Concomitant]
     Route: 048
  3. ACTONEL [Concomitant]
  4. DELTACORTENE [Concomitant]
     Dosage: STRENGTH: 25MG
  5. DEPAKIN CHRONO [Concomitant]
     Dosage: STRENGTH: 300MG
  6. KEPPRA [Concomitant]
     Dosage: STRENGTH: 500MG
  7. ALDACTONE [Concomitant]
  8. CITOFOLIN [Concomitant]
  9. CARDIOASPIRIN [Concomitant]
     Dosage: STRENGTH: 100MG

REACTIONS (2)
  - Sopor [Recovering/Resolving]
  - Hyponatraemia [Recovering/Resolving]
